FAERS Safety Report 6523540-8 (Version None)
Quarter: 2009Q4

REPORT INFORMATION
  Report Type: 
  Country: None (occurrence: None)
  Receive Date: 20091231
  Receipt Date: 20091221
  Transmission Date: 20100525
  Serious: Yes (Other)
  Sender: FDA-Public Use
  Company Number: PHHY2009JP46255

PATIENT
  Age: 65 Year
  Sex: Male

DRUGS (11)
  1. DIOVAN HCT [Suspect]
     Indication: HYPERTENSION
     Dosage: 1 DF DAILY
     Route: 048
     Dates: start: 20090608, end: 20091102
  2. NORVASC [Suspect]
     Indication: HYPERTENSION
     Dosage: 10 MG, UNK
     Route: 048
  3. MINIPRESS [Suspect]
     Indication: HYPERTENSION
     Dosage: 1 G, UNK
     Route: 048
  4. NITOROL [Suspect]
     Indication: ANGINA PECTORIS
     Dosage: 40 MG, UNK
     Route: 048
  5. BEZATOL - SLOW RELEASE [Concomitant]
     Indication: HYPERTRIGLYCERIDAEMIA
     Dosage: 400 MG, UNK
     Route: 048
     Dates: start: 20091002
  6. GASTER [Concomitant]
     Dosage: UNK
     Route: 048
  7. ALINAMIN F [Concomitant]
     Indication: HYPOVITAMINOSIS
     Dosage: 75 MG, UNK
     Route: 048
  8. NIPOLAZIN [Concomitant]
     Indication: RHINITIS ALLERGIC
     Dosage: 6 MG, UNK
     Route: 048
  9. PRIMPERAN TAB [Concomitant]
     Indication: NAUSEA
     Dosage: 10 MG, UNK
     Route: 048
  10. BIOFERMIN [Concomitant]
     Indication: DIARRHOEA
     Dosage: UNK
     Route: 048
  11. TAKEPRON [Concomitant]
     Indication: REFLUX OESOPHAGITIS
     Dosage: 30 MG, UNK
     Route: 048
     Dates: start: 20090119

REACTIONS (2)
  - DISORIENTATION [None]
  - GAMMA-GLUTAMYLTRANSFERASE INCREASED [None]
